FAERS Safety Report 16748109 (Version 1)
Quarter: 2019Q3

REPORT INFORMATION
  Report Type: Spontaneous
  Country: GB (occurrence: GB)
  Receive Date: 20190827
  Receipt Date: 20190827
  Transmission Date: 20191005
  Serious: Yes (Other)
  Sender: FDA-Public Use
  Company Number: GB-009507513-1908GBR007406

PATIENT
  Age: 68 Year
  Sex: Male
  Weight: 102.5 kg

DRUGS (1)
  1. PEMBROLIZUMAB. [Suspect]
     Active Substance: PEMBROLIZUMAB
     Indication: TRANSITIONAL CELL CARCINOMA METASTATIC
     Dosage: 200 MILLIGRAM, ONCE (TOTAL)
     Route: 042
     Dates: start: 20190411, end: 20190411

REACTIONS (7)
  - Diplopia [Unknown]
  - Drug-induced liver injury [Recovered/Resolved]
  - Fatigue [Unknown]
  - Asthenia [Unknown]
  - IVth nerve paralysis [Unknown]
  - Myasthenia gravis [Recovering/Resolving]
  - Eyelid ptosis [Unknown]

NARRATIVE: CASE EVENT DATE: 201905
